FAERS Safety Report 9783793 (Version 1)
Quarter: 2013Q4

REPORT INFORMATION
  Report Type: Spontaneous
  Country: IT (occurrence: IT)
  Receive Date: 20131226
  Receipt Date: 20131226
  Transmission Date: 20140711
  Serious: Yes (Death, Other)
  Sender: FDA-Public Use
  Company Number: PHHY2013IT148743

PATIENT
  Age: 26 Year
  Sex: Male

DRUGS (2)
  1. LIDOCAINE [Suspect]
     Route: 042
  2. COCAINE [Suspect]

REACTIONS (4)
  - Overdose [Fatal]
  - Pulmonary oedema [Unknown]
  - Pulmonary congestion [Unknown]
  - Drug administration error [Unknown]
